FAERS Safety Report 9868047 (Version 2)
Quarter: 2014Q2

REPORT INFORMATION
  Report Type: Spontaneous
  Country: US (occurrence: US)
  Receive Date: 20140204
  Receipt Date: 20140619
  Transmission Date: 20141212
  Serious: Yes (Life-Threatening, Hospitalization, Other)
  Sender: FDA-Public Use
  Company Number: US-009507513-1402USA000657

PATIENT
  Sex: Female

DRUGS (1)
  1. NUVARING [Suspect]
     Dosage: UNK
     Route: 067
     Dates: start: 200702, end: 20131228

REACTIONS (21)
  - Paralysis [Unknown]
  - Superior sagittal sinus thrombosis [Not Recovered/Not Resolved]
  - Hypercoagulation [Unknown]
  - Thrombosis [Not Recovered/Not Resolved]
  - Sensory loss [Recovered/Resolved]
  - Migraine [Unknown]
  - Chills [Unknown]
  - Vomiting [Unknown]
  - Headache [Recovering/Resolving]
  - Sensory loss [Not Recovered/Not Resolved]
  - Nausea [Not Recovered/Not Resolved]
  - Dizziness [Not Recovered/Not Resolved]
  - Pain [Not Recovered/Not Resolved]
  - Balance disorder [Not Recovered/Not Resolved]
  - Vomiting [Not Recovered/Not Resolved]
  - Cerebral thrombosis [Not Recovered/Not Resolved]
  - CSF pressure increased [Not Recovered/Not Resolved]
  - Anxiety [Unknown]
  - Thrombosis [Unknown]
  - Hyperlipidaemia [Unknown]
  - Photophobia [Recovering/Resolving]
